FAERS Safety Report 6264935-X (Version None)
Quarter: 2009Q3

REPORT INFORMATION
  Report Type: 
  Country: None (occurrence: None)
  Receive Date: 20090709
  Receipt Date: 20090709
  Transmission Date: 20100115
  Serious: Yes (Hospitalization)
  Sender: FDA-Public Use
  Company Number: None

PATIENT

DRUGS (1)
  1. SANCTURA XR [Suspect]
     Indication: MICTURITION DISORDER
     Dosage: 1 A DAY 60 MG
     Dates: start: 20090611, end: 20090619

REACTIONS (1)
  - MALAISE [None]
